FAERS Safety Report 6801437-3 (Version None)
Quarter: 2010Q2

REPORT INFORMATION
  Report Type: 
  Country: None (occurrence: None)
  Receive Date: 20100629
  Receipt Date: 20100614
  Transmission Date: 20101027
  Serious: Yes (Other)
  Sender: FDA-Public Use
  Company Number: PL-ROCHE-709251

PATIENT
  Age: 74 Year
  Sex: Female

DRUGS (2)
  1. XELODA [Suspect]
     Indication: COLORECTAL CANCER
     Route: 065
     Dates: end: 20090601
  2. IRINOTECAN [Concomitant]
     Dosage: FREQUENCY: WEEKLY CYCLES.

REACTIONS (4)
  - ANAEMIA [None]
  - DISEASE PROGRESSION [None]
  - NAUSEA [None]
  - PALMAR-PLANTAR ERYTHRODYSAESTHESIA SYNDROME [None]
